FAERS Safety Report 21055746 (Version 2)
Quarter: 2022Q3

REPORT INFORMATION
  Report Type: Report from Study
  Country: AR (occurrence: AR)
  Receive Date: 20220708
  Receipt Date: 20220907
  Transmission Date: 20221027
  Serious: Yes (Hospitalization)
  Sender: FDA-Public Use
  Company Number: AR-ABBVIE-22K-007-4459291-00

PATIENT
  Age: 19 Year
  Sex: Male

DRUGS (1)
  1. HUMIRA [Suspect]
     Active Substance: ADALIMUMAB
     Indication: Psoriasis
     Route: 058
     Dates: start: 20200311

REACTIONS (6)
  - Renal disorder [Unknown]
  - Syncope [Recovered/Resolved]
  - Pharyngeal disorder [Unknown]
  - Pyrexia [Unknown]
  - Headache [Unknown]
  - Acarodermatitis [Recovering/Resolving]

NARRATIVE: CASE EVENT DATE: 20220701
